FAERS Safety Report 8100648-7 (Version None)
Quarter: 2012Q1

REPORT INFORMATION
  Report Type: 
  Country: None (occurrence: None)
  Receive Date: 20120131
  Receipt Date: 20120117
  Transmission Date: 20120608
  Serious: Yes (Other)
  Sender: FDA-Public Use
  Company Number: CA-JNJFOC-20120112898

PATIENT
  Sex: Female
  Weight: 89 kg

DRUGS (1)
  1. REMICADE [Suspect]
     Indication: PSORIATIC ARTHROPATHY
     Dosage: DOSE: 0-2-6 WEEKS INDUCTION DOSE, THERAFTER ONCE EVERY 6 WEEKS
     Route: 042
     Dates: start: 20111207

REACTIONS (1)
  - SKIN DISCOLOURATION [None]
